FAERS Safety Report 5507747-4 (Version None)
Quarter: 2007Q4

REPORT INFORMATION
  Report Type: 
  Country: None (occurrence: None)
  Receive Date: 20071105
  Receipt Date: 20071105
  Transmission Date: 20080405
  Serious: Yes (Life-Threatening, Hospitalization)
  Sender: FDA-Public Use
  Company Number: None

PATIENT
  Age: 60 Year
  Sex: Male

DRUGS (1)
  1. OMNIPAQUE 140 [Suspect]
     Dosage: 100 CC ONCE
     Dates: start: 20070222, end: 20070222

REACTIONS (7)
  - APNOEA [None]
  - CARDIO-RESPIRATORY ARREST [None]
  - COUGH [None]
  - CYANOSIS [None]
  - HYPERHIDROSIS [None]
  - RESPIRATORY DEPRESSION [None]
  - SKIN DISCOLOURATION [None]
